FAERS Safety Report 6141982-X (Version None)
Quarter: 2009Q2

REPORT INFORMATION
  Report Type: 
  Country: None (occurrence: None)
  Receive Date: 20090402
  Receipt Date: 20090323
  Transmission Date: 20091009
  Serious: Yes (Death)
  Sender: FDA-Public Use
  Company Number: SE-GENENTECH-279116

PATIENT
  Age: 68 Year
  Sex: Female

DRUGS (1)
  1. NUTROPIN [Suspect]
     Indication: GROWTH HORMONE DEFICIENCY

REACTIONS (2)
  - DEATH [None]
  - MYOCARDIAL INFARCTION [None]
